FAERS Safety Report 5267873-4 (Version None)
Quarter: 2007Q1

REPORT INFORMATION
  Report Type: 
  Country: None (occurrence: None)
  Receive Date: 20061213
  Receipt Date: 20050107
  Transmission Date: 20070707
  Serious: Yes (Other)
  Sender: FDA-Public Use
  Company Number: 2004UW24916

PATIENT
  Age: 71 Year
  Sex: Female
  Weight: 70.4 kg

DRUGS (7)
  1. IRESSA [Suspect]
     Indication: LUNG CANCER METASTATIC
     Dosage: 250 MG DAILY PO
     Route: 048
     Dates: start: 20040901
  2. CHEMOTHERAPY [Suspect]
  3. SYNTHROID [Concomitant]
  4. LASIX [Concomitant]
  5. COZAAR [Concomitant]
  6. KLOR-CON [Concomitant]
  7. PEYOTE TEA [Concomitant]

REACTIONS (7)
  - ACNE [None]
  - ANAEMIA [None]
  - BLOOD ALBUMIN DECREASED [None]
  - FACE OEDEMA [None]
  - ORTHOPNOEA [None]
  - PRURITUS [None]
  - SWELLING [None]
